FAERS Safety Report 6518517-2 (Version None)
Quarter: 2009Q4

REPORT INFORMATION
  Report Type: 
  Country: None (occurrence: None)
  Receive Date: 20091226
  Receipt Date: 20091217
  Transmission Date: 20100525
  Serious: Yes (Other)
  Sender: FDA-Public Use
  Company Number: JP-JNJFOC-20090701034

PATIENT
  Sex: Female

DRUGS (4)
  1. TOPINA [Suspect]
     Indication: GRAND MAL CONVULSION
     Route: 048
  2. TOPINA [Suspect]
     Dosage: SIX MONTHS BACK
     Route: 048
  3. EXCEGRAN [Suspect]
     Indication: GRAND MAL CONVULSION
     Route: 048
  4. PHENOBARBITAL TAB [Suspect]
     Indication: DRUG USE FOR UNKNOWN INDICATION
     Route: 048

REACTIONS (2)
  - CALCULUS URETERIC [None]
  - PAIN [None]
